FAERS Safety Report 5958830-0 (Version None)
Quarter: 2008Q4

REPORT INFORMATION
  Report Type: 
  Country: None (occurrence: None)
  Receive Date: 20081117
  Receipt Date: 20081103
  Transmission Date: 20090506
  Serious: Yes (Hospitalization)
  Sender: FDA-Public Use
  Company Number: WAES 0805USA05040

PATIENT
  Age: 78 Year
  Sex: Male
  Weight: 96.6162 kg

DRUGS (44)
  1. CAP VORINOSTAT [Suspect]
     Indication: ACUTE MYELOID LEUKAEMIA
     Dosage: 400 MG/DAILY/PO; 400 MG/DAILY/PO; 400 MG/DAILY/PO; 400 MG/DAILY/PO
     Route: 048
     Dates: start: 20080331, end: 20080413
  2. CAP VORINOSTAT [Suspect]
     Indication: ACUTE MYELOID LEUKAEMIA
     Dosage: 400 MG/DAILY/PO; 400 MG/DAILY/PO; 400 MG/DAILY/PO; 400 MG/DAILY/PO
     Route: 048
     Dates: start: 20080430, end: 20080513
  3. CAP VORINOSTAT [Suspect]
     Indication: ACUTE MYELOID LEUKAEMIA
     Dosage: 400 MG/DAILY/PO; 400 MG/DAILY/PO; 400 MG/DAILY/PO; 400 MG/DAILY/PO
     Route: 048
     Dates: start: 20080528, end: 20080610
  4. CAP VORINOSTAT [Suspect]
     Indication: ACUTE MYELOID LEUKAEMIA
     Dosage: 400 MG/DAILY/PO; 400 MG/DAILY/PO; 400 MG/DAILY/PO; 400 MG/DAILY/PO
     Route: 048
     Dates: start: 20080702, end: 20080715
  5. DECITABINE [Suspect]
     Indication: ACUTE MYELOID LEUKAEMIA
     Dosage: 45 MG/IV; 45.5 MG/IV; 44.8 MG/IV; 44.8 MG/IV; 44.8MG/IV; 44.8MG/IV
     Route: 042
     Dates: start: 20080331, end: 20080404
  6. DECITABINE [Suspect]
     Indication: ACUTE MYELOID LEUKAEMIA
     Dosage: 45 MG/IV; 45.5 MG/IV; 44.8 MG/IV; 44.8 MG/IV; 44.8MG/IV; 44.8MG/IV
     Route: 042
     Dates: start: 20080430, end: 20080504
  7. DECITABINE [Suspect]
     Indication: ACUTE MYELOID LEUKAEMIA
     Dosage: 45 MG/IV; 45.5 MG/IV; 44.8 MG/IV; 44.8 MG/IV; 44.8MG/IV; 44.8MG/IV
     Route: 042
     Dates: start: 20080528, end: 20080601
  8. DECITABINE [Suspect]
     Indication: ACUTE MYELOID LEUKAEMIA
     Dosage: 45 MG/IV; 45.5 MG/IV; 44.8 MG/IV; 44.8 MG/IV; 44.8MG/IV; 44.8MG/IV
     Route: 042
     Dates: start: 20080702, end: 20080703
  9. DECITABINE [Suspect]
     Indication: ACUTE MYELOID LEUKAEMIA
     Dosage: 45 MG/IV; 45.5 MG/IV; 44.8 MG/IV; 44.8 MG/IV; 44.8MG/IV; 44.8MG/IV
     Route: 042
     Dates: start: 20080705, end: 20080707
  10. ASPARTAT [Concomitant]
  11. AVELOX [Concomitant]
  12. BACTRIM DS [Concomitant]
  13. COLACE [Concomitant]
  14. COMPAZINE [Concomitant]
  15. COREG [Concomitant]
  16. CRESTOR [Concomitant]
  17. DIFLUCAN [Concomitant]
  18. FLOMAX (MORNIFLUMATE) [Concomitant]
  19. HIBICLENS [Concomitant]
  20. MUCOMYST [Concomitant]
  21. NORVASC [Concomitant]
  22. PLAVIX [Concomitant]
  23. PROTONIX [Concomitant]
  24. ROLAIDS [Concomitant]
  25. TUMS [Concomitant]
  26. ZOFRAN [Concomitant]
  27. ZOSYN [Concomitant]
  28. THERAPY UNSPECIFIED [Concomitant]
  29. ACETAMINOPHEN [Concomitant]
  30. ACYCLOVIR [Concomitant]
  31. ALLOPURINOL [Concomitant]
  32. CHLORHEXIDINE GLUCONATE [Concomitant]
  33. DIGOXIN [Concomitant]
  34. DIPHENHYDRAMINE HYDROCHLORIDE [Concomitant]
  35. EPTIFIBATIDE [Concomitant]
  36. LISINOPRIL [Concomitant]
  37. LORAZEPAM [Concomitant]
  38. METFORMIN HCL [Concomitant]
  39. MOXIFLOXACIN HYDROCHLORIDE [Concomitant]
  40. MUPIROCIN [Concomitant]
  41. NYSTATIN [Concomitant]
  42. OXYCODONE HCL [Concomitant]
  43. VANCOMYIN [Concomitant]
  44. LABETALOL HYDROCHLORIDE [Concomitant]

REACTIONS (24)
  - ATRIAL FIBRILLATION [None]
  - CARDIAC FAILURE CONGESTIVE [None]
  - CARDIAC FIBRILLATION [None]
  - CARDIOMEGALY [None]
  - CELLULITIS [None]
  - CLOSTRIDIAL INFECTION [None]
  - CONSTIPATION [None]
  - CULTURE URINE POSITIVE [None]
  - FEBRILE NEUTROPENIA [None]
  - HYPERBILIRUBINAEMIA [None]
  - HYPERGLYCAEMIA [None]
  - HYPERTENSION [None]
  - LUNG DISORDER [None]
  - MASTOIDITIS [None]
  - MYOCARDIAL INFARCTION [None]
  - MYOCARDIAL ISCHAEMIA [None]
  - NAUSEA [None]
  - PLEURAL EFFUSION [None]
  - PNEUMONIA [None]
  - PULMONARY OEDEMA [None]
  - QRS AXIS ABNORMAL [None]
  - RASH PUSTULAR [None]
  - STAPHYLOCOCCAL INFECTION [None]
  - VOMITING [None]
